FAERS Safety Report 7306543-5 (Version None)
Quarter: 2011Q1

REPORT INFORMATION
  Report Type: 
  Country: None (occurrence: None)
  Receive Date: 20110222
  Receipt Date: 20110215
  Transmission Date: 20110831
  Serious: Yes (Life-Threatening, Other)
  Sender: FDA-Public Use
  Company Number: US-PFIZER INC-2010119237

PATIENT
  Sex: Male
  Weight: 74.83 kg

DRUGS (12)
  1. OXYCODONE HCL AND ACETAMINOPHEN [Concomitant]
     Indication: ARTHRALGIA
     Dosage: 5/325MG, QID
     Route: 048
  2. PREVACID [Concomitant]
     Dosage: 30 MG, 1X/DAY
     Dates: start: 20091001
  3. FENOFIBRATE [Concomitant]
     Dosage: 200 MG, 1X/DAY
     Dates: start: 20091001
  4. LYRICA [Suspect]
     Indication: NEUROPATHY PERIPHERAL
  5. FOLBIC [Concomitant]
     Dosage: UNK
     Dates: start: 20091001
  6. DIGOXIN [Concomitant]
     Dosage: 250 UG, 1X/DAY
     Dates: start: 20091001
  7. COUMADIN [Concomitant]
     Dosage: 2 PER DAY, OCC. 3
     Dates: start: 20100802
  8. LYRICA [Suspect]
     Indication: NERVOUS SYSTEM DISORDER
     Dosage: 50 MG, 3X/DAY
     Route: 048
     Dates: start: 20100802, end: 20100812
  9. LOVAZA [Concomitant]
     Dosage: UNK
     Dates: start: 20091001
  10. LISINOPRIL [Concomitant]
     Dosage: 20 MG, 1X/DAY
     Dates: start: 20091001
  11. BYSTOLIC [Concomitant]
     Dosage: 10 MG, 1X/DAY
     Dates: start: 20091001
  12. SERTRALINE [Concomitant]
     Dosage: 50 MG, 1X/DAY
     Dates: start: 20100201

REACTIONS (4)
  - MYALGIA [None]
  - COGNITIVE DISORDER [None]
  - MUSCLE SWELLING [None]
  - GAIT DISTURBANCE [None]
